FAERS Safety Report 7040558-X (Version None)
Quarter: 2010Q4

REPORT INFORMATION
  Report Type: 
  Country: None (occurrence: None)
  Receive Date: 20101006
  Receipt Date: 20100921
  Transmission Date: 20110411
  Serious: Yes (Congenital Anomaly)
  Sender: FDA-Public Use
  Company Number: CIP10002332

PATIENT
  Sex: Male
  Weight: 12 kg

DRUGS (7)
  1. NITROFURANTOIN MACROCRYSTALLINE [Suspect]
     Indication: PROPHYLAXIS URINARY TRACT INFECTION
     Dosage: TRANSPLACENTAL
     Route: 064
  2. TACROLIMUS [Suspect]
     Indication: LIVER TRANSPLANT
     Dosage: 3 MG DAILY, TRANSPLACENTAL, 6 MG DAILY, TRANSPLACENTAL
     Route: 064
  3. PREDNISONE TAB [Suspect]
     Indication: LIVER TRANSPLANT
     Dosage: 2.5 MG DAILY, 40 MG DAILY, TRANSPLACENTAL, 10 MG DAILY, TRANSPLACENTAL
     Route: 064
  4. FAMOTIDINE [Suspect]
     Indication: DYSPEPSIA
     Dosage: TRANSPLACENTAL
     Route: 064
  5. ASACOL [Suspect]
     Dosage: TRANSPLACENTAL
     Route: 064
  6. PRENATAL VITAMINS /01549301/ (ASCORBIC ACID, BIOTIN, MINERALS NOS, NIC [Suspect]
     Dosage: TRANSPLACENTAL
     Route: 064
  7. IRON (IRON) [Suspect]
     Dosage: TRANSPLACENTAL
     Route: 064

REACTIONS (3)
  - ANAL ATRESIA [None]
  - MATERNAL DRUGS AFFECTING FOETUS [None]
  - PREMATURE BABY [None]
